FAERS Safety Report 10634176 (Version 1)
Quarter: 2014Q4

REPORT INFORMATION
  Report Type: Spontaneous
  Country: US (occurrence: US)
  Receive Date: 20141205
  Receipt Date: 20141205
  Transmission Date: 20150529
  Serious: No
  Sender: FDA-Public Use
  Company Number: US-ASTELLAS-2014US013793

PATIENT
  Age: 85 Year
  Sex: Male

DRUGS (1)
  1. XTANDI [Suspect]
     Active Substance: ENZALUTAMIDE
     Indication: NEOPLASM PROSTATE
     Route: 048
     Dates: start: 20140904

REACTIONS (4)
  - Pain in extremity [Unknown]
  - Pollakiuria [Unknown]
  - Micturition urgency [Unknown]
  - Arthritis [Unknown]

NARRATIVE: CASE EVENT DATE: 20140923
